FAERS Safety Report 8872170 (Version 1)
Quarter: 2012Q4

REPORT INFORMATION
  Report Type: 
  Country: FR (occurrence: FR)
  Receive Date: 20121030
  Receipt Date: 20121030
  Transmission Date: 20130627
  Serious: Yes (Hospitalization)
  Sender: FDA-Public Use
  Company Number: FR-JNJFOC-20121010643

PATIENT
  Age: 51 Year
  Sex: Female

DRUGS (17)
  1. DUROGESIC [Suspect]
     Indication: PRODUCT USED FOR UNKNOWN INDICATION
     Route: 062
     Dates: end: 201208
  2. DUROGESIC [Suspect]
     Indication: PRODUCT USED FOR UNKNOWN INDICATION
     Route: 062
     Dates: start: 201208
  3. DUROGESIC [Suspect]
     Indication: PRODUCT USED FOR UNKNOWN INDICATION
     Route: 062
  4. IXPRIM [Suspect]
     Indication: PRODUCT USED FOR UNKNOWN INDICATION
     Route: 048
  5. IXPRIM [Suspect]
     Indication: PRODUCT USED FOR UNKNOWN INDICATION
     Route: 048
     Dates: start: 201208
  6. IXPRIM [Suspect]
     Indication: PRODUCT USED FOR UNKNOWN INDICATION
     Route: 048
     Dates: end: 201208
  7. STABLON [Concomitant]
     Route: 065
  8. IMOVANE [Concomitant]
     Route: 065
  9. LYSANXIA [Concomitant]
     Route: 065
  10. VALIUM [Concomitant]
     Route: 065
  11. METFORMINE [Concomitant]
     Route: 065
  12. TAHOR [Concomitant]
     Route: 065
  13. INEXIUM [Concomitant]
     Route: 065
  14. DIFFU K [Concomitant]
     Route: 065
  15. SULFARLEM [Concomitant]
     Route: 065
  16. KEPPRA [Concomitant]
     Route: 065
  17. HUMIRA [Concomitant]
     Route: 058

REACTIONS (5)
  - Depressed mood [Unknown]
  - Aggression [Unknown]
  - Hallucination [Unknown]
  - Confusional state [Unknown]
  - Somnambulism [Unknown]
